FAERS Safety Report 5144690-7 (Version None)
Quarter: 2006Q4

REPORT INFORMATION
  Report Type: 
  Country: None (occurrence: None)
  Receive Date: 20061031
  Receipt Date: 20061017
  Transmission Date: 20070319
  Serious: Yes (Other)
  Sender: FDA-Public Use
  Company Number: SP01007

PATIENT
  Sex: Male

DRUGS (1)
  1. COLAZAL [Suspect]
     Indication: HAEMORRHAGE
     Dosage: 3 CAPSULES/TID, ORAL
     Route: 048
     Dates: start: 20060901, end: 20061001

REACTIONS (4)
  - ARTHRITIS [None]
  - DYSPNOEA [None]
  - FEELING ABNORMAL [None]
  - LETHARGY [None]
